FAERS Safety Report 18770617 (Version 2)
Quarter: 2021Q1

REPORT INFORMATION
  Report Type: Spontaneous
  Country: CA (occurrence: CA)
  Receive Date: 20210121
  Receipt Date: 20210228
  Transmission Date: 20210419
  Serious: Yes (Other)
  Sender: FDA-Public Use
  Company Number: NVSC2021CA011301

PATIENT
  Age: 66 Year
  Sex: Female

DRUGS (3)
  1. RITUXIMAB. [Suspect]
     Active Substance: RITUXIMAB
     Indication: MELANOMA RECURRENT
     Dosage: UNK
     Route: 065
  2. METHYLPREDNISOLONE. [Suspect]
     Active Substance: METHYLPREDNISOLONE
     Indication: MELANOMA RECURRENT
     Dosage: UNK
     Route: 065
  3. INFLIXIMAB [Suspect]
     Active Substance: INFLIXIMAB
     Indication: MELANOMA RECURRENT
     Dosage: 1 DF
     Route: 065

REACTIONS (3)
  - Product use in unapproved indication [Unknown]
  - Steroid diabetes [Unknown]
  - Chronic kidney disease [Unknown]
